FAERS Safety Report 10028103 (Version 1)
Quarter: 2014Q1

REPORT INFORMATION
  Report Type: Spontaneous
  Country: US (occurrence: US)
  Receive Date: 20140321
  Receipt Date: 20140321
  Transmission Date: 20141002
  Serious: Yes (Death, Other)
  Sender: FDA-Public Use
  Company Number: US-ASTRAZENECA-2014SE19646

PATIENT
  Age: 71 Year
  Sex: Female
  Weight: 40.8 kg

DRUGS (11)
  1. TOPROL XL [Suspect]
     Indication: ARRHYTHMIA
     Route: 048
     Dates: start: 2008, end: 2013
  2. TOPROL XL [Suspect]
     Indication: CARDIAC FIBRILLATION
     Route: 048
     Dates: start: 2008, end: 2013
  3. TOPROL XL [Suspect]
     Indication: ARRHYTHMIA
     Route: 048
     Dates: start: 2013, end: 2013
  4. TOPROL XL [Suspect]
     Indication: CARDIAC FIBRILLATION
     Route: 048
     Dates: start: 2013, end: 2013
  5. TOPROL XL [Suspect]
     Indication: ARRHYTHMIA
     Route: 048
     Dates: start: 2013, end: 2013
  6. TOPROL XL [Suspect]
     Indication: CARDIAC FIBRILLATION
     Route: 048
     Dates: start: 2013, end: 2013
  7. DIGOXIN [Concomitant]
     Indication: CARDIAC DISORDER
  8. BABY ASPIRIN [Concomitant]
     Indication: CARDIAC DISORDER
  9. BABY ASPIRIN [Concomitant]
     Indication: CARDIOVASCULAR DISORDER
  10. VYTORIN [Concomitant]
     Indication: BLOOD CHOLESTEROL ABNORMAL
     Dosage: 10/40 MG DAILY
  11. MULTIVITAMIN [Concomitant]
     Dosage: DAILY

REACTIONS (4)
  - Hypertension [Fatal]
  - Cerebrovascular accident [Unknown]
  - Atrial fibrillation [Fatal]
  - Therapy cessation [Unknown]
